FAERS Safety Report 22280278 (Version 2)
Quarter: 2023Q2

REPORT INFORMATION
  Report Type: Spontaneous
  Country: GB (occurrence: GB)
  Receive Date: 20230503
  Receipt Date: 20230508
  Transmission Date: 20230721
  Serious: Yes (Other)
  Sender: FDA-Public Use
  Company Number: GB-PFIZER INC-PV202300070736

PATIENT
  Sex: Male

DRUGS (4)
  1. DEXAMETHASONE [Suspect]
     Active Substance: DEXAMETHASONE
     Indication: Product used for unknown indication
     Dosage: UNK
     Route: 065
     Dates: start: 201512, end: 201605
  2. FLUOROURACIL [Suspect]
     Active Substance: FLUOROURACIL
     Indication: Gastrointestinal carcinoma
     Dosage: UNK (CHEMOTHERAPY INFUSION TREATMENT)
     Route: 065
     Dates: start: 201512, end: 201605
  3. OXALIPLATIN [Suspect]
     Active Substance: OXALIPLATIN
     Indication: Gastrointestinal carcinoma
     Dosage: UNK (CHEMOTHERAPY INFUSION TREATMENT)
     Route: 065
     Dates: start: 201512, end: 201605
  4. LEUCOVORIN [Suspect]
     Active Substance: LEUCOVORIN
     Indication: Gastrointestinal carcinoma
     Dosage: UNK, (CHEMOTHERAPY INFUSION TREATMENT)
     Route: 065
     Dates: start: 201512, end: 201605

REACTIONS (8)
  - Neuropathy peripheral [Unknown]
  - Cachexia [Unknown]
  - Fatigue [Unknown]
  - Psychomotor hyperactivity [Unknown]
  - Sleep disorder due to general medical condition, insomnia type [Unknown]
  - Balance disorder [Unknown]
  - Tinnitus [Unknown]
  - Decreased appetite [Unknown]
